FAERS Safety Report 21619134 (Version 1)
Quarter: 2022Q4

REPORT INFORMATION
  Report Type: Spontaneous
  Country: US (occurrence: US)
  Receive Date: 20221120
  Receipt Date: 20221120
  Transmission Date: 20230113
  Serious: Yes (Death)
  Sender: FDA-Public Use
  Company Number: US-CTI BIOPHARMA-2022US03178

PATIENT

DRUGS (15)
  1. VONJO [Suspect]
     Active Substance: PACRITINIB
     Indication: Myelofibrosis
     Dosage: 100 MG, BID
     Route: 048
  2. ISOSORBIDE [Concomitant]
     Active Substance: ISOSORBIDE
  3. COLACE [Concomitant]
     Active Substance: DOCUSATE SODIUM
  4. DILTIAZEM [Concomitant]
     Active Substance: DILTIAZEM
  5. DULOXETINE [Concomitant]
     Active Substance: DULOXETINE
  6. ESCITALOPRAM [Concomitant]
     Active Substance: ESCITALOPRAM OXALATE
  7. FOLIC ACID [Concomitant]
     Active Substance: FOLIC ACID
  8. IBANDRONATE SODIUM [Concomitant]
     Active Substance: IBANDRONATE SODIUM
  9. LOSARTAN [Concomitant]
     Active Substance: LOSARTAN
  10. METHYLPREDNISOLONE [Concomitant]
     Active Substance: METHYLPREDNISOLONE
  11. VITAMINS [Concomitant]
     Active Substance: VITAMINS
  12. MYRBETRIQ [Concomitant]
     Active Substance: MIRABEGRON
  13. PANTOPRAZOLE [Concomitant]
     Active Substance: PANTOPRAZOLE
  14. PRAVASTATIN [Concomitant]
     Active Substance: PRAVASTATIN
  15. PROPRANOLOL [Concomitant]
     Active Substance: PROPRANOLOL HYDROCHLORIDE

REACTIONS (1)
  - Death [Fatal]

NARRATIVE: CASE EVENT DATE: 20221101
